FAERS Safety Report 6242096-0 (Version None)
Quarter: 2009Q2

REPORT INFORMATION
  Report Type: 
  Country: None (occurrence: None)
  Receive Date: 20090623
  Receipt Date: 20090619
  Transmission Date: 20091009
  Serious: Yes (Other)
  Sender: FDA-Public Use
  Company Number: US-JNJCH-2009016862

PATIENT
  Age: 56 Year
  Sex: Female
  Weight: 59 kg

DRUGS (10)
  1. LUBRIDERM SENSITIVE SKIN THERAPY [Suspect]
     Indication: THERAPEUTIC SKIN CARE TOPICAL
     Dosage: TEXT:ONE-HALF ^TABLE^ SIZE TWICE DAILY
     Route: 061
     Dates: start: 20090612, end: 20090617
  2. SYNTHROID [Concomitant]
     Indication: HYPOTHYROIDISM
     Dosage: TEXT:100 MCG DAILY
     Route: 065
  3. PREMARIN [Concomitant]
     Indication: OESTROGEN REPLACEMENT THERAPY
     Dosage: TEXT:1.25 MG DAILY
     Route: 065
  4. BUPROPION HYDROCHLORIDE [Concomitant]
     Indication: DEPRESSION
     Dosage: TEXT:50 MG DAILY
     Route: 065
  5. DRUG, UNSPECIFIED [Concomitant]
     Indication: TARDIVE DYSKINESIA
     Dosage: TEXT:1.25 MG THREE TIMES DAILY
     Route: 065
  6. ASPIRIN [Concomitant]
     Indication: CARDIAC DISORDER
     Dosage: TEXT:81 MG DAILY
     Route: 065
  7. ASCORBIC ACID [Concomitant]
     Indication: ROUTINE HEALTH MAINTENANCE
     Dosage: TEXT:ONE TABLET DAILY
     Route: 065
  8. VITAMIN D [Concomitant]
     Indication: ROUTINE HEALTH MAINTENANCE
     Dosage: TEXT:ONE TABLET DAILY
     Route: 065
  9. VITAMIN E [Concomitant]
     Indication: ROUTINE HEALTH MAINTENANCE
     Dosage: TEXT:ONE TABLET DAILY
     Route: 065
  10. DRUG, UNSPECIFIED [Concomitant]
     Indication: DRUG USE FOR UNKNOWN INDICATION
     Dosage: TEXT:UNSPECIFIED
     Route: 065

REACTIONS (2)
  - HYPERSENSITIVITY [None]
  - RASH PAPULAR [None]
